FAERS Safety Report 8488678-7 (Version None)
Quarter: 2012Q3

REPORT INFORMATION
  Report Type: 
  Country: None (occurrence: None)
  Receive Date: 20120705
  Receipt Date: 20120625
  Transmission Date: 20120928
  Serious: Yes (Hospitalization, Other)
  Sender: FDA-Public Use
  Company Number: US-ASTRAZENECA-2011SE78633

PATIENT
  Age: 33 Year
  Sex: Female
  Weight: 63.5 kg

DRUGS (6)
  1. SEROQUEL [Suspect]
     Route: 048
  2. SEROQUEL [Suspect]
     Indication: BIPOLAR I DISORDER
     Route: 048
  3. SEROQUEL [Suspect]
     Indication: OBSESSIVE-COMPULSIVE DISORDER
     Route: 048
  4. NORCO [Concomitant]
     Indication: PAIN
  5. SEROQUEL [Suspect]
     Route: 048
  6. CELEXA [Concomitant]
     Indication: PANIC ATTACK

REACTIONS (26)
  - BREAST MASS [None]
  - MIGRAINE [None]
  - GENERAL PHYSICAL HEALTH DETERIORATION [None]
  - INTERVERTEBRAL DISC PROTRUSION [None]
  - BREAST CYST [None]
  - BLADDER DISORDER [None]
  - ENDOMETRIOSIS [None]
  - OFF LABEL USE [None]
  - SUICIDAL BEHAVIOUR [None]
  - SPINAL OSTEOARTHRITIS [None]
  - PANIC ATTACK [None]
  - HOMICIDAL IDEATION [None]
  - VERTEBRAL COLUMN MASS [None]
  - ABNORMAL BEHAVIOUR [None]
  - OBSESSIVE-COMPULSIVE DISORDER [None]
  - INSOMNIA [None]
  - HEADACHE [None]
  - BIPOLAR DISORDER [None]
  - ANXIETY [None]
  - DRUG DOSE OMISSION [None]
  - BIPOLAR I DISORDER [None]
  - DEPRESSION [None]
  - OVARIAN CYST [None]
  - INTENTIONAL DRUG MISUSE [None]
  - CYST RUPTURE [None]
  - COLITIS [None]
